FAERS Safety Report 4665947-X (Version None)
Quarter: 2005Q2

REPORT INFORMATION
  Report Type: 
  Country: None (occurrence: None)
  Receive Date: 20050517
  Receipt Date: 20050517
  Transmission Date: 20051028
  Serious: Yes (Hospitalization)
  Sender: FDA-Public Use
  Company Number: None

PATIENT
  Age: 77 Year
  Sex: Male
  Weight: 95.709 kg

DRUGS (14)
  1. WARFARIN  2.5MG [Suspect]
     Indication: ATRIAL FIBRILLATION
     Dosage: 2.5MG+1.25MG  QHS ORAL
     Route: 048
     Dates: start: 19990421, end: 20050221
  2. APAP W/ CODEINE [Concomitant]
  3. AMANTADINE [Concomitant]
  4. CALCIUM CARBONATE [Concomitant]
  5. CARBIDOPA AND LEVODOPA [Concomitant]
  6. CYCLOBENZAPRINE HCL [Concomitant]
  7. DOCUSATE [Concomitant]
  8. FUROSEMIDE [Concomitant]
  9. LACTULOSE [Concomitant]
  10. METOPROLOL [Concomitant]
  11. MULTI-VITAMIN [Concomitant]
  12. PRAMIPEXOLE [Concomitant]
  13. SALSALATE [Concomitant]
  14. SERTRALINE HCL [Concomitant]

REACTIONS (6)
  - DELIRIUM [None]
  - DRUG INTERACTION [None]
  - FALL [None]
  - HAEMATOCRIT DECREASED [None]
  - INTERNATIONAL NORMALISED RATIO INCREASED [None]
  - MENTAL STATUS CHANGES [None]
